FAERS Safety Report 6980296-2 (Version None)
Quarter: 2010Q3

REPORT INFORMATION
  Report Type: 
  Country: None (occurrence: None)
  Receive Date: 20100914
  Receipt Date: 20100903
  Transmission Date: 20110219
  Serious: Yes (Death)
  Sender: FDA-Public Use
  Company Number: US-ROCHE-710132

PATIENT
  Sex: Male

DRUGS (2)
  1. PEGINTERFERON ALFA-2A [Suspect]
     Indication: HEPATITIS
     Dosage: 180 MCG/0.5 ML
     Route: 065
     Dates: start: 20081210, end: 20090101
  2. RIBAVIRIN [Suspect]
     Indication: HEPATITIS
     Route: 065
     Dates: start: 20081210, end: 20090101

REACTIONS (1)
  - LIVER DISORDER [None]
